FAERS Safety Report 8011767-8 (Version None)
Quarter: 2011Q4

REPORT INFORMATION
  Report Type: 
  Country: None (occurrence: None)
  Receive Date: 20111228
  Receipt Date: 20111220
  Transmission Date: 20120403
  Serious: Yes (Hospitalization, Other)
  Sender: FDA-Public Use
  Company Number: PHHY2011GB110750

PATIENT
  Age: 61 Year
  Sex: Male

DRUGS (8)
  1. CEFUROXIME [Concomitant]
     Dosage: UNK
     Route: 042
     Dates: start: 20110112, end: 20110112
  2. MELOXICAM [Suspect]
     Indication: ANALGESIC THERAPY
     Dosage: 15 MG, UNK
     Route: 048
     Dates: start: 20110113
  3. ALLOPURINOL [Concomitant]
     Indication: GOUT
     Dosage: UNK
     Route: 048
  4. KETOROLAC TROMETHAMINE [Suspect]
     Indication: ANALGESIC THERAPY
     Dosage: 30 MG, UNK
     Route: 042
     Dates: start: 20110112, end: 20110112
  5. ACETAMINOPHEN [Concomitant]
     Dosage: UNK
     Dates: start: 20110113
  6. DABIGATRAN ETEXILATE [Suspect]
     Indication: THROMBOSIS PROPHYLAXIS
     Dosage: 110 MG, UNK
     Route: 048
     Dates: start: 20110112
  7. DABIGATRAN ETEXILATE [Suspect]
     Dosage: 220 MG, UNK
     Route: 048
     Dates: end: 20110113
  8. OXYCONTIN [Concomitant]
     Indication: ANALGESIC THERAPY
     Dosage: UNK
     Dates: start: 20110114, end: 20110115

REACTIONS (1)
  - POST PROCEDURAL HAEMORRHAGE [None]
